FAERS Safety Report 9276981 (Version 1)
Quarter: 2013Q2

REPORT INFORMATION
  Report Type: Report from Study
  Country: US (occurrence: US)
  Receive Date: 20130507
  Receipt Date: 20130507
  Transmission Date: 20140414
  Serious: Yes (Other)
  Sender: FDA-Public Use
  Company Number: US-ABBOTT-13P-163-1083633-00

PATIENT
  Sex: Female

DRUGS (1)
  1. HUMIRA [Suspect]
     Indication: PRODUCT USED FOR UNKNOWN INDICATION
     Route: 058
     Dates: start: 20121002, end: 20121201

REACTIONS (4)
  - Keratoconus [Not Recovered/Not Resolved]
  - Breast enlargement [Unknown]
  - Visual impairment [Not Recovered/Not Resolved]
  - Pain [Unknown]
